FAERS Safety Report 7987054-0 (Version None)
Quarter: 2011Q4

REPORT INFORMATION
  Report Type: 
  Country: None (occurrence: None)
  Receive Date: 20111216
  Receipt Date: 20111028
  Transmission Date: 20120403
  Serious: No
  Sender: FDA-Public Use
  Company Number: US-BRISTOL-MYERS SQUIBB COMPANY-16092215

PATIENT
  Age: 33 Year
  Sex: Male

DRUGS (4)
  1. ABILIFY [Suspect]
     Indication: BIPOLAR DISORDER
     Route: 048
     Dates: start: 20110911, end: 20110919
  2. ABILIFY [Suspect]
     Indication: DEPRESSION
     Route: 048
     Dates: start: 20110911, end: 20110919
  3. DEPAKOTE [Concomitant]
     Dosage: ONCE AT NT
     Route: 048
  4. SEROQUEL [Concomitant]
     Dosage: DF=0 TO 200MG ONCE AT NT
     Route: 048

REACTIONS (1)
  - SOMNAMBULISM [None]
